FAERS Safety Report 19785686 (Version 1)
Quarter: 2021Q3

REPORT INFORMATION
  Report Type: Spontaneous
  Country: CA (occurrence: CA)
  Receive Date: 20210903
  Receipt Date: 20210903
  Transmission Date: 20211014
  Serious: Yes (Hospitalization)
  Sender: FDA-Public Use
  Company Number: CA-ROCHE-2897739

PATIENT
  Sex: Female

DRUGS (6)
  1. RITUXIMAB. [Suspect]
     Active Substance: RITUXIMAB
     Indication: PROGRESSIVE MULTIPLE SCLEROSIS
     Route: 042
  2. BENADRYL [Concomitant]
     Active Substance: DIPHENHYDRAMINE HYDROCHLORIDE
     Indication: PREMEDICATION
     Route: 048
  3. METHYLPREDNISOLONE SODIUM SUCCINATE. [Concomitant]
     Active Substance: METHYLPREDNISOLONE SODIUM SUCCINATE
     Indication: PREMEDICATION
     Route: 042
  4. BACTRIM [Suspect]
     Active Substance: SULFAMETHOXAZOLE\TRIMETHOPRIM
     Indication: PRODUCT USED FOR UNKNOWN INDICATION
     Route: 065
  5. FAMPYRA [Concomitant]
     Active Substance: DALFAMPRIDINE
  6. TYLENOL [Concomitant]
     Active Substance: ACETAMINOPHEN
     Indication: PREMEDICATION
     Route: 048

REACTIONS (10)
  - Drug hypersensitivity [Unknown]
  - Intentional product use issue [Unknown]
  - Nausea [Unknown]
  - Neuropathy peripheral [Unknown]
  - Off label use [Unknown]
  - Vertigo [Unknown]
  - Hip fracture [Unknown]
  - Pain [Unknown]
  - Fall [Unknown]
  - Malaise [Unknown]
